FAERS Safety Report 5252084-9 (Version None)
Quarter: 2007Q1

REPORT INFORMATION
  Report Type: 
  Country: None (occurrence: None)
  Receive Date: 20070227
  Receipt Date: 20070213
  Transmission Date: 20070707
  Serious: Yes (Other)
  Sender: FDA-Public Use
  Company Number: PAR_1372_2007

PATIENT
  Sex: Male

DRUGS (4)
  1. IBUPROFEN [Suspect]
     Dosage: DF
  2. ASPIRIN [Suspect]
     Dosage: DF
  3. TWO CANS OF LAGER [Suspect]
     Dosage: 2 DF PO
     Route: 048
  4. PAROXETINE HCL [Suspect]
     Dosage: DF

REACTIONS (3)
  - DRUG WITHDRAWAL SYNDROME [None]
  - MULTIPLE DRUG OVERDOSE INTENTIONAL [None]
  - SUICIDE ATTEMPT [None]
